FAERS Safety Report 7745768-1 (Version None)
Quarter: 2011Q3

REPORT INFORMATION
  Report Type: 
  Country: None (occurrence: None)
  Receive Date: 20110825
  Receipt Date: 20110720
  Transmission Date: 20111222
  Serious: No
  Sender: FDA-Public Use
  Company Number: 332215

PATIENT
  Age: 67 Year
  Sex: Female

DRUGS (1)
  1. VICTOZA [Suspect]
     Indication: BLOOD TRIGLYCERIDES INCREASED
     Dosage: SUBCUTANEOUS
     Route: 058
     Dates: start: 20110101

REACTIONS (5)
  - WEIGHT DECREASED [None]
  - INJECTION SITE DISCOMFORT [None]
  - HERPES SIMPLEX [None]
  - PHARYNGEAL OEDEMA [None]
  - SWOLLEN TONGUE [None]
